FAERS Safety Report 6936079-2 (Version None)
Quarter: 2010Q3

REPORT INFORMATION
  Report Type: 
  Country: None (occurrence: None)
  Receive Date: 20100817
  Receipt Date: 20100805
  Transmission Date: 20110219
  Serious: Yes (Other)
  Sender: FDA-Public Use
  Company Number: 2010MA001515

PATIENT
  Age: 66 Year
  Sex: Male

DRUGS (2)
  1. RANITIDINE [Suspect]
     Indication: DYSPEPSIA
     Dosage: 150 MG UNK PO
     Route: 048
     Dates: start: 20100716
  2. RANITIDINE [Concomitant]

REACTIONS (1)
  - DYSGEUSIA [None]
